FAERS Safety Report 9328695 (Version 1)
Quarter: 2013Q2

REPORT INFORMATION
  Report Type: Spontaneous
  Country: US (occurrence: US)
  Receive Date: 20130604
  Receipt Date: 20130604
  Transmission Date: 20140414
  Serious: No
  Sender: FDA-Public Use
  Company Number: US-SANOFI-AVENTIS-2013SA010098

PATIENT
  Age: 71 Year
  Sex: Female

DRUGS (5)
  1. LANTUS [Suspect]
     Indication: TYPE 2 DIABETES MELLITUS
     Dosage: DOSE:20 UNIT(S)
     Route: 058
     Dates: start: 20130129
  2. LANTUS [Suspect]
     Indication: TYPE 2 DIABETES MELLITUS
     Dosage: DOSE:30 UNIT(S)
     Route: 058
     Dates: start: 20130202
  3. TRAMADOL [Concomitant]
     Indication: BACK PAIN
  4. TRAMADOL [Concomitant]
     Indication: ARTHRALGIA
  5. TRAMADOL [Concomitant]
     Indication: ARTHRALGIA

REACTIONS (2)
  - Chest discomfort [Unknown]
  - Blood glucose increased [Unknown]
